FAERS Safety Report 9677425 (Version 1)
Quarter: 2013Q4

REPORT INFORMATION
  Report Type: Spontaneous
  Country: US (occurrence: US)
  Receive Date: 20131108
  Receipt Date: 20131108
  Transmission Date: 20140711
  Serious: No
  Sender: FDA-Public Use
  Company Number: US-ENDO PHARMACEUTICALS INC.-PHEN20120002

PATIENT
  Age: 45 Year
  Sex: Female
  Weight: 88.53 kg

DRUGS (1)
  1. PHENTERMINE HCL TABLETS [Suspect]
     Indication: DECREASED APPETITE
     Dosage: UNKNOWN
     Route: 048
     Dates: start: 201201

REACTIONS (1)
  - Drug ineffective [Unknown]
